FAERS Safety Report 14483459 (Version 4)
Quarter: 2018Q1

REPORT INFORMATION
  Report Type: Report from Study
  Country: CA (occurrence: CA)
  Receive Date: 20180204
  Receipt Date: 20180323
  Transmission Date: 20180509
  Serious: Yes (Death)
  Sender: FDA-Public Use
  Company Number: CA-HLSUS-2018-CA-000182

PATIENT
  Age: 71 Year
  Sex: Female

DRUGS (1)
  1. CLOZARIL [Suspect]
     Active Substance: CLOZAPINE
     Route: 048
     Dates: start: 20121218

REACTIONS (5)
  - Coronary artery disease [Unknown]
  - Cardiac arrest [Fatal]
  - Shock [Fatal]
  - Anaemia [Unknown]
  - Peritoneal haemorrhage [Fatal]

NARRATIVE: CASE EVENT DATE: 20180106
